FAERS Safety Report 9256805 (Version 1)
Quarter: 2013Q2

REPORT INFORMATION
  Report Type: Spontaneous
  Country: US (occurrence: None)
  Receive Date: 20130423
  Receipt Date: 20130423
  Transmission Date: 20140414
  Serious: Yes (Other)
  Sender: FDA-Public Use
  Company Number: None

PATIENT
  Age: 52 Year
  Sex: Male

DRUGS (1)
  1. DORZOL/TIMOLOL [Suspect]
     Indication: GLAUCOMA
     Dosage: 1 DROP   2 X TIMES DAY  OPHTHALMIC
     Route: 047
     Dates: start: 20121226, end: 20130420

REACTIONS (1)
  - Product substitution issue [None]
